FAERS Safety Report 7654624-9 (Version None)
Quarter: 2011Q3

REPORT INFORMATION
  Report Type: 
  Country: None (occurrence: None)
  Receive Date: 20110803
  Receipt Date: 20110721
  Transmission Date: 20111222
  Serious: Yes (Other)
  Sender: FDA-Public Use
  Company Number: JP-MYLANLABS-2011S1015546

PATIENT
  Age: 71 Year
  Sex: Male

DRUGS (3)
  1. FLUOROURACIL [Suspect]
     Indication: NEOPLASM MALIGNANT
     Dosage: 600-700 MG/M2
     Route: 041
  2. DOCETAXEL [Suspect]
     Indication: NEOPLASM MALIGNANT
     Route: 065
  3. CISPLATIN [Suspect]
     Indication: NEOPLASM MALIGNANT
     Route: 065

REACTIONS (1)
  - ASPARTATE AMINOTRANSFERASE INCREASED [None]
